FAERS Safety Report 8303106-X (Version None)
Quarter: 2012Q2

REPORT INFORMATION
  Report Type: 
  Country: None (occurrence: None)
  Receive Date: 20120423
  Receipt Date: 20120411
  Transmission Date: 20120825
  Serious: Yes (Other)
  Sender: FDA-Public Use
  Company Number: TR-AMGEN-TURSP2012023445

PATIENT
  Age: 42 Year
  Sex: Male

DRUGS (1)
  1. ENBREL [Suspect]
     Indication: ANKYLOSING SPONDYLITIS
     Dosage: 50 MG, WEEKLY
     Route: 058
     Dates: start: 20111012, end: 20120201

REACTIONS (4)
  - WHEEZING [None]
  - COUGH [None]
  - INFLUENZA [None]
  - DYSPNOEA [None]
